FAERS Safety Report 9668470 (Version 1)
Quarter: 2013Q4

REPORT INFORMATION
  Report Type: Spontaneous
  Country: GB (occurrence: GB)
  Receive Date: 20131105
  Receipt Date: 20131105
  Transmission Date: 20140711
  Serious: Yes (Life-Threatening, Hospitalization)
  Sender: FDA-Public Use
  Company Number: GB-ROCHE-1298449

PATIENT
  Age: 83 Year
  Sex: Male

DRUGS (16)
  1. LUCENTIS [Suspect]
     Indication: DIABETIC RETINAL OEDEMA
     Route: 050
     Dates: start: 20130627
  2. LUCENTIS [Suspect]
     Route: 050
     Dates: start: 20130913
  3. ALLOPURINOL [Concomitant]
     Route: 065
  4. ATORVASTATIN [Concomitant]
  5. BISOPROLOL [Concomitant]
  6. FERROUS FUMARATE [Concomitant]
  7. DOXAZOSIN [Concomitant]
  8. FUROSEMIDE [Concomitant]
  9. WARFARIN [Concomitant]
  10. PREGABALIN [Concomitant]
  11. LANSOPRAZOLE [Concomitant]
  12. LINAGLIPTIN [Concomitant]
  13. ISOSORBIDE MONONITRATE [Concomitant]
     Route: 065
  14. NICORANDIL [Concomitant]
  15. SODIUM BICARBONATE [Concomitant]
  16. ZOPICLONE [Concomitant]

REACTIONS (5)
  - Cardiac failure [Recovering/Resolving]
  - Pulmonary oedema [Recovering/Resolving]
  - Myocardial infarction [Recovering/Resolving]
  - Atrial fibrillation [Recovering/Resolving]
  - Atrioventricular block complete [Recovering/Resolving]
